FAERS Safety Report 5318639-8 (Version None)
Quarter: 2007Q1

REPORT INFORMATION
  Report Type: 
  Country: None (occurrence: None)
  Receive Date: 20070130
  Receipt Date: 20061019
  Transmission Date: 20070707
  Serious: No
  Sender: FDA-Public Use
  Company Number: 200616531US

PATIENT
  Age: 49 Year
  Sex: Female
  Weight: 59.09 kg

DRUGS (6)
  1. KETEK [Suspect]
     Indication: SINUSITIS
     Dosage: 400 MG QD PO
     Route: 048
     Dates: start: 20060724, end: 20060728
  2. PANTOPRAZOLE SODIUM [Concomitant]
  3. ESCITALOPRAM OXALATE (LEXAPRO) [Concomitant]
  4. . [Concomitant]
  5. . [Concomitant]
  6. ESTROGENS CONJUGATED (MENEST /OLD FORM/) [Concomitant]

REACTIONS (4)
  - DIZZINESS [None]
  - HEADACHE [None]
  - TINNITUS [None]
  - VISUAL ACUITY REDUCED [None]
